FAERS Safety Report 6283983-7 (Version None)
Quarter: 2009Q3

REPORT INFORMATION
  Report Type: 
  Country: None (occurrence: None)
  Receive Date: 20090722
  Receipt Date: 20090709
  Transmission Date: 20100115
  Serious: Yes (Hospitalization)
  Sender: FDA-Public Use
  Company Number: 8048803

PATIENT
  Age: 2 Month
  Sex: Male

DRUGS (2)
  1. XOZAL [Suspect]
     Indication: HYPERSENSITIVITY
     Dosage: 2.5 ML 1/D PO
     Route: 048
     Dates: start: 20090704, end: 20090705
  2. PENTAVAC /01416401/ [Concomitant]

REACTIONS (5)
  - DRUG DISPENSING ERROR [None]
  - OVERDOSE [None]
  - SOMNOLENCE [None]
  - WHITE BLOOD CELL COUNT INCREASED [None]
  - WRONG DRUG ADMINISTERED [None]
